FAERS Safety Report 5207942-8 (Version None)
Quarter: 2007Q1

REPORT INFORMATION
  Report Type: 
  Country: None (occurrence: None)
  Receive Date: 20070115
  Receipt Date: 20070103
  Transmission Date: 20070707
  Serious: Yes (Other)
  Sender: FDA-Public Use
  Company Number: DE-ELI_LILLY_AND_COMPANY-DE200609001101

PATIENT
  Age: 22 Year
  Sex: Female

DRUGS (3)
  1. OLANZAPINE [Suspect]
     Indication: ANXIETY
     Dosage: 2.5 MG, UNK
  2. PAROXETINE HCL [Concomitant]
     Indication: ANXIETY DISORDER
     Dosage: 40 MG, UNK
  3. LITHIUM CARBONATE [Interacting]
     Indication: ANXIETY DISORDER
     Dosage: 900 MG, UNK

REACTIONS (3)
  - CONDITION AGGRAVATED [None]
  - DRUG INTERACTION [None]
  - OCULOGYRATION [None]
